FAERS Safety Report 10330334 (Version 1)
Quarter: 2014Q3

REPORT INFORMATION
  Report Type: Spontaneous
  Country: GB (occurrence: GB)
  Receive Date: 20140722
  Receipt Date: 20140722
  Transmission Date: 20150326
  Serious: Yes (Disabling, Other)
  Sender: FDA-Public Use
  Company Number: GB-009507513-1407GBR007642

PATIENT
  Age: 65 Year
  Sex: Male
  Weight: 79 kg

DRUGS (6)
  1. ZOCOR [Suspect]
     Active Substance: SIMVASTATIN
     Route: 048
     Dates: start: 2000
  2. RAMIPRIL. [Concomitant]
     Active Substance: RAMIPRIL
  3. BENDROFLUAZIDE TABLETS [Concomitant]
  4. GARLIC. [Concomitant]
     Active Substance: GARLIC
     Dosage: 1200 MG
  5. HYPOVASE [Concomitant]
  6. SYMBICORT [Concomitant]
     Active Substance: BUDESONIDE\FORMOTEROL FUMARATE DIHYDRATE

REACTIONS (2)
  - Musculoskeletal disorder [Not Recovered/Not Resolved]
  - Cartilage injury [Not Recovered/Not Resolved]

NARRATIVE: CASE EVENT DATE: 2000
